FAERS Safety Report 7270383-6 (Version None)
Quarter: 2011Q1

REPORT INFORMATION
  Report Type: 
  Country: None (occurrence: None)
  Receive Date: 20110202
  Receipt Date: 20110120
  Transmission Date: 20110831
  Serious: Yes (Other)
  Sender: FDA-Public Use
  Company Number: FR-ELI_LILLY_AND_COMPANY-FR201101005111

PATIENT
  Sex: Male

DRUGS (3)
  1. EFFIENT [Suspect]
     Indication: STENT PLACEMENT
     Dosage: 60 MG, OTHER
     Route: 048
     Dates: start: 20100201
  2. EFFIENT [Suspect]
     Dosage: 10 MG, UNKNOWN
     Route: 048
     Dates: start: 20100201
  3. EFFIENT [Suspect]
     Dosage: 10 MG, UNKNOWN
     Route: 048

REACTIONS (3)
  - FATIGUE [None]
  - ERYTHEMA [None]
  - VERTIGO [None]
